FAERS Safety Report 6645849-X (Version None)
Quarter: 2010Q1

REPORT INFORMATION
  Report Type: 
  Country: None (occurrence: None)
  Receive Date: 20100318
  Receipt Date: 20100318
  Transmission Date: 20100710
  Serious: No
  Sender: FDA-Public Use
  Company Number: None

PATIENT
  Age: 69 Year
  Sex: Male
  Weight: 122.4712 kg

DRUGS (1)
  1. ALDARA [Suspect]
     Indication: SQUAMOUS CELL CARCINOMA
     Dosage: 1 PACKET- 0.25 G 4 TIMES PER WEEK CUTANEOUS
     Route: 003
     Dates: start: 20100217, end: 20100224

REACTIONS (4)
  - BLOOD URINE PRESENT [None]
  - RENAL CYST [None]
  - RENAL PAIN [None]
  - URINE ABNORMALITY [None]
